FAERS Safety Report 6297713-6 (Version None)
Quarter: 2009Q3

REPORT INFORMATION
  Report Type: 
  Country: None (occurrence: None)
  Receive Date: 20090805
  Receipt Date: 20090728
  Transmission Date: 20100115
  Serious: Yes (Hospitalization, Other)
  Sender: FDA-Public Use
  Company Number: US-AMGEN-QUU357692

PATIENT
  Sex: Male

DRUGS (1)
  1. ENBREL [Suspect]
     Indication: PSORIASIS
     Route: 058
     Dates: start: 20060615

REACTIONS (5)
  - ALCOHOL ABUSE [None]
  - BLOOD ALCOHOL INCREASED [None]
  - PSORIASIS [None]
  - STRESS [None]
  - SYNCOPE [None]
